FAERS Safety Report 5361059-0 (Version None)
Quarter: 2007Q2

REPORT INFORMATION
  Report Type: 
  Country: None (occurrence: None)
  Receive Date: 20070612
  Receipt Date: 20070529
  Transmission Date: 20071010
  Serious: Yes (Other)
  Sender: FDA-Public Use
  Company Number: 2007309791

PATIENT
  Age: 17 Year
  Sex: Female
  Weight: 54.4316 kg

DRUGS (1)
  1. VISINE L.R. [Suspect]
     Indication: OCULAR HYPERAEMIA
     Dosage: ONE DROP IN EACH EYE ONCE IN THE MORNING, OPTHALMIC
     Route: 047
     Dates: end: 20070207

REACTIONS (8)
  - CORNEAL ABRASION [None]
  - CORNEAL DISORDER [None]
  - DRY EYE [None]
  - KERATITIS [None]
  - PAIN [None]
  - PHARMACEUTICAL PRODUCT COMPLAINT [None]
  - STRESS [None]
  - VISION BLURRED [None]
